FAERS Safety Report 15375976 (Version 2)
Quarter: 2018Q4

REPORT INFORMATION
  Report Type: Spontaneous
  Country: US (occurrence: US)
  Receive Date: 20180912
  Receipt Date: 20181025
  Transmission Date: 20190204
  Serious: Yes (Other)
  Sender: FDA-Public Use
  Company Number: US-PFIZER INC-2018366933

PATIENT
  Age: 54 Year
  Sex: Male

DRUGS (1)
  1. BENEFIX [Suspect]
     Active Substance: COAGULATION FACTOR IX RECOMBINANT HUMAN\ISOPROPYL ALCOHOL
     Indication: COAGULATION FACTOR IX LEVEL
     Dosage: UNK

REACTIONS (2)
  - Haemorrhage [Unknown]
  - Injury [Recovering/Resolving]
